FAERS Safety Report 20600557 (Version 1)
Quarter: 2022Q1

REPORT INFORMATION
  Report Type: Spontaneous
  Country: IT (occurrence: IT)
  Receive Date: 20220316
  Receipt Date: 20220316
  Transmission Date: 20220423
  Serious: Yes (Other)
  Sender: FDA-Public Use
  Company Number: IT-ALKEM LABORATORIES LIMITED-IT-ALKEM-2022-01928

PATIENT
  Age: 70 Year
  Sex: Male

DRUGS (1)
  1. CEFUROXIME AXETIL [Suspect]
     Active Substance: CEFUROXIME AXETIL
     Indication: Product used for unknown indication
     Dosage: 1 MG CEFUROXIME IN 0.1ML BALANCED SALT SOLUTION
     Route: 065

REACTIONS (2)
  - Macular detachment [Recovered/Resolved]
  - Retinal oedema [Recovered/Resolved]
